FAERS Safety Report 6332182-9 (Version None)
Quarter: 2009Q3

REPORT INFORMATION
  Report Type: 
  Country: None (occurrence: None)
  Receive Date: 20090828
  Receipt Date: 20090805
  Transmission Date: 20100115
  Serious: No
  Sender: FDA-Public Use
  Company Number: US-BAYER-200928302NA

PATIENT
  Age: 38 Year
  Sex: Male

DRUGS (3)
  1. LEVITRA [Suspect]
     Indication: ERECTILE DYSFUNCTION
     Dosage: UNIT DOSE: 20 MG
  2. AMLODIPINE [Concomitant]
  3. AVAPRO [Concomitant]

REACTIONS (1)
  - ERECTILE DYSFUNCTION [None]
